FAERS Safety Report 4850445-0 (Version None)
Quarter: 2005Q4

REPORT INFORMATION
  Report Type: 
  Country: None (occurrence: None)
  Receive Date: 20051207
  Receipt Date: 20051207
  Transmission Date: 20060501
  Serious: Yes (Hospitalization)
  Sender: FDA-Public Use
  Company Number: None

PATIENT
  Age: 38 Year
  Sex: Male
  Weight: 67 kg

DRUGS (2)
  1. QUETIAPINE [Suspect]
     Indication: AGITATION
     Dosage: 100MG PO ONE TIME
     Route: 048
     Dates: start: 20050802
  2. ZIPRASIDONE [Suspect]
     Indication: AGITATION
     Dosage: 20MG IM ONE TIME
     Route: 030
     Dates: start: 20050802

REACTIONS (7)
  - ABNORMAL BEHAVIOUR [None]
  - BLOOD CREATINE PHOSPHOKINASE INCREASED [None]
  - BLOOD CREATININE INCREASED [None]
  - HYPERPYREXIA [None]
  - NEUROLEPTIC MALIGNANT SYNDROME [None]
  - POSTURING [None]
  - URINARY INCONTINENCE [None]
